FAERS Safety Report 9384283 (Version 1)
Quarter: 2013Q3

REPORT INFORMATION
  Report Type: Spontaneous
  Country: US (occurrence: US)
  Receive Date: 20130705
  Receipt Date: 20130705
  Transmission Date: 20140515
  Serious: No
  Sender: FDA-Public Use
  Company Number: US-009507513-1307USA000012

PATIENT
  Age: 24 Year
  Sex: Female

DRUGS (2)
  1. SAPHRIS [Suspect]
     Indication: BIPOLAR I DISORDER
     Dosage: 5 MG, BID
     Route: 060
     Dates: start: 201306, end: 20130624
  2. TEGRETOL [Concomitant]
     Dosage: UNK

REACTIONS (1)
  - Hyperprolactinaemia [Unknown]
